FAERS Safety Report 9561566 (Version 2)
Quarter: 2013Q4

REPORT INFORMATION
  Report Type: Spontaneous
  Country: IT (occurrence: IT)
  Receive Date: 20130927
  Receipt Date: 20131003
  Transmission Date: 20140711
  Serious: Yes (Other)
  Sender: FDA-Public Use
  Company Number: IT-RANBAXY-2013RR-73335

PATIENT
  Age: 65 Year
  Sex: Male

DRUGS (4)
  1. DELORAZEPAM [Suspect]
     Indication: ANXIETY
     Dosage: 1 MG, PRN
     Route: 048
     Dates: start: 20130830, end: 20130830
  2. HYDROCHLOROTHIAZIDE/OLMESARTAN MEDOXOMIL [Interacting]
     Indication: HYPERTENSION
     Dosage: 20 MG DAILY
     Route: 048
     Dates: start: 20130830, end: 20130830
  3. AERIUS [Concomitant]
     Indication: URTICARIA
     Dosage: UNK
     Route: 065
     Dates: start: 20130830, end: 20130830
  4. NEODUPLAMOX [Concomitant]
     Indication: INFECTION
     Dosage: UNK
     Route: 065
     Dates: start: 20130830, end: 20130830

REACTIONS (1)
  - Hypotension [Recovered/Resolved]
